FAERS Safety Report 8517506-6 (Version None)
Quarter: 2012Q3

REPORT INFORMATION
  Report Type: 
  Country: None (occurrence: None)
  Receive Date: 20120718
  Receipt Date: 20120713
  Transmission Date: 20120928
  Serious: Yes (Other)
  Sender: FDA-Public Use
  Company Number: US-FRI-1000031499

PATIENT
  Age: 31 Year
  Sex: Male

DRUGS (6)
  1. VIIBRYD [Suspect]
     Indication: DEPRESSION
     Dosage: 10 MG
     Route: 048
     Dates: start: 20120409, end: 20120415
  2. VIIBRYD [Suspect]
     Dosage: 20 MG
     Route: 048
     Dates: start: 20120416, end: 20120422
  3. VIIBRYD [Suspect]
     Dosage: 40 MG
     Route: 048
     Dates: start: 20120423, end: 20120601
  4. VIIBRYD [Suspect]
     Dosage: 50 MG
     Route: 048
     Dates: start: 20120601
  5. GABAPENTIN [Concomitant]
     Indication: ANXIETY
  6. ABILIFY [Concomitant]
     Indication: DEPRESSION

REACTIONS (1)
  - SUICIDAL IDEATION [None]
